FAERS Safety Report 17528191 (Version 1)
Quarter: 2020Q1

REPORT INFORMATION
  Report Type: Spontaneous
  Country: CZ (occurrence: CZ)
  Receive Date: 20200311
  Receipt Date: 20200311
  Transmission Date: 20200409
  Serious: Yes (Other)
  Sender: FDA-Public Use
  Company Number: NVSC2020CZ063036

PATIENT
  Sex: Male

DRUGS (4)
  1. PAZOPANIB [Suspect]
     Active Substance: PAZOPANIB
     Dosage: 600 MG, QD
     Route: 065
     Dates: start: 20160804, end: 20160901
  2. PAZOPANIB [Suspect]
     Active Substance: PAZOPANIB
     Indication: PRODUCT USED FOR UNKNOWN INDICATION
     Dosage: 400 MG, QD
     Route: 065
     Dates: start: 20160707, end: 20160804
  3. PAZOPANIB [Suspect]
     Active Substance: PAZOPANIB
     Dosage: 800 MG, QD
     Route: 065
     Dates: start: 20160901, end: 20181018
  4. PAZOPANIB [Suspect]
     Active Substance: PAZOPANIB
     Dosage: 400 MG, QD
     Route: 065
     Dates: start: 20181018

REACTIONS (12)
  - Blood pressure increased [Recovered/Resolved]
  - Flatulence [Unknown]
  - Weight decreased [Recovering/Resolving]
  - Fatigue [Recovered/Resolved]
  - Hair colour changes [Unknown]
  - Pigmentation disorder [Unknown]
  - Aspartate aminotransferase increased [Recovered/Resolved]
  - Gastrointestinal toxicity [Unknown]
  - Blood lactate dehydrogenase increased [Recovered/Resolved]
  - Alanine aminotransferase increased [Recovered/Resolved]
  - Appetite disorder [Unknown]
  - Faeces soft [Unknown]

NARRATIVE: CASE EVENT DATE: 201810
